FAERS Safety Report 9046244 (Version 1)
Quarter: 2013Q1

REPORT INFORMATION
  Report Type: Spontaneous
  Country: US (occurrence: None)
  Receive Date: 20130128
  Receipt Date: 20130128
  Transmission Date: 20140127
  Serious: No
  Sender: FDA-Public Use
  Company Number: None

PATIENT
  Age: 42 Year
  Sex: Male
  Weight: 80.5 kg

DRUGS (5)
  1. ANDRODERM [Suspect]
     Indication: HYPOGONADISM
     Route: 062
     Dates: start: 20121017, end: 20130114
  2. CLOMID [Concomitant]
  3. TOPAMAX [Concomitant]
  4. ZOLPIDAM [Concomitant]
  5. TRAMADOL [Concomitant]

REACTIONS (2)
  - Skin reaction [None]
  - Blister [None]
